FAERS Safety Report 21411450 (Version 5)
Quarter: 2024Q1

REPORT INFORMATION
  Report Type: Spontaneous
  Country: US (occurrence: US)
  Receive Date: 20221005
  Receipt Date: 20240129
  Transmission Date: 20240409
  Serious: No
  Sender: FDA-Public Use
  Company Number: US-PFIZER INC-202201204551

PATIENT
  Age: 73 Year
  Sex: Female

DRUGS (1)
  1. VIZIMPRO [Suspect]
     Active Substance: DACOMITINIB
     Dosage: 30 MG, DAILY, (DIRECTIONS/DOSING INSTRUCTIONS: 2 TABS ORAL DAILY)
     Route: 048

REACTIONS (3)
  - Skin lesion [Unknown]
  - Diarrhoea [Unknown]
  - Erythema [Unknown]
